FAERS Safety Report 11853446 (Version 1)
Quarter: 2015Q4

REPORT INFORMATION
  Report Type: Report from Study
  Country: BE (occurrence: BE)
  Receive Date: 20151218
  Receipt Date: 20151218
  Transmission Date: 20160305
  Serious: Yes (Other)
  Sender: FDA-Public Use
  Company Number: BE-BRISTOL-MYERS SQUIBB COMPANY-11676939

PATIENT
  Age: 42 Year
  Sex: Female
  Weight: 76.8 kg

DRUGS (5)
  1. ACICLOVIR [Concomitant]
     Active Substance: ACYCLOVIR
     Indication: PRODUCT USED FOR UNKNOWN INDICATION
     Dosage: 1600 MG, QD
     Route: 065
     Dates: start: 199707
  2. EFAVIRENZ [Suspect]
     Active Substance: EFAVIRENZ
     Indication: HIV INFECTION
     Dosage: 600 MG, QD
     Route: 048
     Dates: start: 20010621
  3. KALETRA [Concomitant]
     Active Substance: LOPINAVIR\RITONAVIR
     Indication: HIV INFECTION
     Dosage: 80 MG, QD
     Route: 065
     Dates: start: 20010621
  4. D4T [Concomitant]
     Active Substance: STAVUDINE
     Indication: HIV INFECTION
     Dosage: 80 MG, QD
     Route: 048
     Dates: start: 20010621
  5. AMPRENAVIR [Concomitant]
     Active Substance: AMPRENAVIR
     Indication: HIV INFECTION
     Dosage: 1800 MG, QD
     Route: 065
     Dates: start: 20010621

REACTIONS (2)
  - Pregnancy on contraceptive [Recovered/Resolved]
  - Abortion induced [Unknown]

NARRATIVE: CASE EVENT DATE: 20011216
